FAERS Safety Report 20662960 (Version 1)
Quarter: 2022Q1

REPORT INFORMATION
  Report Type: Spontaneous
  Country: US (occurrence: None)
  Receive Date: 20220331
  Receipt Date: 20220331
  Transmission Date: 20220423
  Serious: Yes (Other)
  Sender: FDA-Public Use
  Company Number: None

PATIENT
  Age: 42 Year
  Sex: Female
  Weight: 78.9 kg

DRUGS (2)
  1. EVUSHELD [Suspect]
     Active Substance: CILGAVIMAB\TIXAGEVIMAB
     Indication: Exposure to SARS-CoV-2
     Dosage: OTHER FREQUENCY : ONCE;?
     Route: 030
     Dates: start: 20220330, end: 20220330
  2. EVUSHELD [Suspect]
     Active Substance: CILGAVIMAB\TIXAGEVIMAB
     Indication: COVID-19 prophylaxis

REACTIONS (6)
  - Infusion related reaction [None]
  - Malaise [None]
  - Flushing [None]
  - Mouth swelling [None]
  - Nausea [None]
  - Chills [None]

NARRATIVE: CASE EVENT DATE: 20220330
